FAERS Safety Report 7949230-2 (Version None)
Quarter: 2011Q4

REPORT INFORMATION
  Report Type: 
  Country: None (occurrence: None)
  Receive Date: 20111130
  Receipt Date: 20111123
  Transmission Date: 20120403
  Serious: Yes (Death, Life-Threatening)
  Sender: FDA-Public Use
  Company Number: DE-ROCHE-1016056

PATIENT
  Sex: Male
  Weight: 110 kg

DRUGS (1)
  1. ACTIVASE [Suspect]
     Indication: ISCHAEMIC STROKE
     Dates: start: 20110929, end: 20110929

REACTIONS (1)
  - CEREBRAL HAEMORRHAGE [None]
